FAERS Safety Report 24371455 (Version 2)
Quarter: 2024Q4

REPORT INFORMATION
  Report Type: Spontaneous
  Country: FR (occurrence: FR)
  Receive Date: 20240927
  Receipt Date: 20241002
  Transmission Date: 20250115
  Serious: Yes (Life-Threatening, Hospitalization)
  Sender: PFIZER
  Company Number: None

PATIENT
  Age: 18 Year
  Sex: Female
  Weight: 45 kg

DRUGS (12)
  1. ADCETRIS [Suspect]
     Active Substance: BRENTUXIMAB VEDOTIN
     Indication: Hodgkin^s disease stage III
     Dosage: TOTAL DOSE=310 MG
     Route: 042
     Dates: start: 20240429, end: 20240625
  2. VINCRISTINE SULFATE [Suspect]
     Active Substance: VINCRISTINE SULFATE
     Indication: Hodgkin^s disease stage III
     Dosage: TOTAL DOSE=9.32 MG
     Route: 042
     Dates: start: 20230512, end: 20230904
  3. GEMCITABINE HYDROCHLORIDE [Suspect]
     Active Substance: GEMCITABINE HYDROCHLORIDE
     Indication: Hodgkin^s disease stage III
     Dosage: TOTAL DOSE=6358 MG
     Route: 042
     Dates: start: 20240119, end: 20240216
  4. KEYTRUDA [Suspect]
     Active Substance: PEMBROLIZUMAB
     Indication: Hodgkin^s disease stage III
     Dosage: TOTAL DOSE=800 MG
     Route: 042
     Dates: start: 20240119, end: 20240402
  5. BLEOMYCIN SULFATE [Suspect]
     Active Substance: BLEOMYCIN SULFATE
     Indication: Hodgkin^s disease stage III
     Dosage: 15 MG
     Route: 042
     Dates: start: 20230512, end: 20230719
  6. NAVELBINE [Suspect]
     Active Substance: VINORELBINE TARTRATE
     Indication: Hodgkin^s disease stage III
     Dosage: TOTAL DOSE=128 MG
     Route: 042
     Dates: start: 20240119, end: 20240216
  7. OXALIPLATIN [Suspect]
     Active Substance: OXALIPLATIN
     Indication: Hodgkin^s disease stage III
     Dosage: TOTAL DOSE=620 MG
     Route: 042
     Dates: start: 20240429, end: 20240625
  8. CYCLOPHOSPHAMIDE [Suspect]
     Active Substance: CYCLOPHOSPHAMIDE
     Indication: Hodgkin^s disease stage III
     Dosage: TOTAL DOSE11060 MG
     Route: 042
     Dates: start: 20230505, end: 20230828
  9. DEXAMETHASONE SODIUM PHOSPHATE [Suspect]
     Active Substance: DEXAMETHASONE SODIUM PHOSPHATE
     Indication: Hodgkin^s disease stage III
     Dosage: TOTAL DOSE=480 MG
     Route: 048
     Dates: start: 20240429, end: 20240628
  10. CYTARABINE [Suspect]
     Active Substance: CYTARABINE
     Indication: Hodgkin^s disease stage III
     Dosage: TOTAL DOSE=19100 MG
     Route: 042
     Dates: start: 20240430, end: 20240626
  11. ETOPOPHOS [Suspect]
     Active Substance: ETOPOSIDE PHOSPHATE
     Indication: Hodgkin^s disease stage III
     Dosage: TOTAL DOSE=5280 MG
     Route: 042
     Dates: start: 20230505, end: 20230830
  12. DOXORUBICIN HYDROCHLORIDE [Suspect]
     Active Substance: DOXORUBICIN HYDROCHLORIDE
     Indication: Hodgkin^s disease stage III
     Dosage: TOTAL DOSE=403 MG
     Route: 042
     Dates: start: 20230505, end: 20240216

REACTIONS (2)
  - Cardiac failure [Recovered/Resolved]
  - Condition aggravated [Recovered/Resolved]

NARRATIVE: CASE EVENT DATE: 20240229
